FAERS Safety Report 8918884 (Version 1)
Quarter: 2012Q4

REPORT INFORMATION
  Report Type: Spontaneous
  Country: US (occurrence: None)
  Receive Date: 20121115
  Receipt Date: 20121115
  Transmission Date: 20130627
  Serious: Yes (Hospitalization)
  Sender: FDA-Public Use
  Company Number: None

PATIENT
  Sex: Female
  Weight: 72 kg

DRUGS (1)
  1. NATALIZUMAB [Suspect]
     Indication: CROHN^S DISEASE

REACTIONS (1)
  - Progressive multifocal leukoencephalopathy [None]
